FAERS Safety Report 20804157 (Version 1)
Quarter: 2022Q2

REPORT INFORMATION
  Report Type: Spontaneous
  Country: IN (occurrence: IN)
  Receive Date: 20220509
  Receipt Date: 20220509
  Transmission Date: 20220721
  Serious: Yes (Hospitalization)
  Sender: FDA-Public Use
  Company Number: IN-LUPIN PHARMACEUTICALS INC.-2022-06654

PATIENT
  Age: 16 Year
  Sex: Female

DRUGS (1)
  1. ALBENDAZOLE [Suspect]
     Active Substance: ALBENDAZOLE
     Indication: Taeniasis
     Dosage: 15 MILLIGRAM/KILOGRAM, QD (IN TWO DIVIDED DOSES FOR 2 WEEK. LATER, ALBENDAZOLE WAS CONTINUED FOR 2 M
     Route: 065

REACTIONS (1)
  - Drug ineffective [Unknown]
